FAERS Safety Report 9820029 (Version 1)
Quarter: 2014Q1

REPORT INFORMATION
  Report Type: Spontaneous
  Country: US (occurrence: None)
  Receive Date: 20140113
  Receipt Date: 20140113
  Transmission Date: 20141002
  Serious: Yes (Disabling)
  Sender: FDA-Public Use
  Company Number: None

PATIENT
  Age: 61 Year
  Sex: Female
  Weight: 70.31 kg

DRUGS (1)
  1. MONTELUKAST SODIUM [Suspect]
     Dates: start: 20131215, end: 20140116

REACTIONS (3)
  - Product substitution issue [None]
  - Drug ineffective [None]
  - Asthma [None]
